FAERS Safety Report 25944270 (Version 2)
Quarter: 2025Q4

REPORT INFORMATION
  Report Type: Spontaneous
  Country: US (occurrence: US)
  Receive Date: 20251021
  Receipt Date: 20251027
  Transmission Date: 20260117
  Serious: Yes (Hospitalization)
  Sender: ROCHE
  Company Number: US-ROCHE-10000413487

PATIENT
  Sex: Male

DRUGS (1)
  1. COTELLIC [Suspect]
     Active Substance: COBIMETINIB FUMARATE
     Indication: Histiocytosis
     Dosage: 21 DAYS
     Route: 048
     Dates: start: 202509

REACTIONS (3)
  - Haemorrhage [Unknown]
  - Contusion [Unknown]
  - Constipation [Recovering/Resolving]
